FAERS Safety Report 8862361 (Version 1)
Quarter: 2012Q4

REPORT INFORMATION
  Report Type: 
  Country: US (occurrence: US)
  Receive Date: 20121026
  Receipt Date: 20121026
  Transmission Date: 20130627
  Serious: Yes (Other)
  Sender: FDA-Public Use
  Company Number: US-BAYER-2012-112510

PATIENT
  Age: 39 Year
  Sex: Female

DRUGS (5)
  1. YASMIN [Suspect]
  2. FOLIC ACID [Concomitant]
  3. HYDROCODONE W/ACETAMINOPHEN [Concomitant]
  4. INDOMETHACIN [Concomitant]
  5. CYCLOBENZAPRINE [Concomitant]

REACTIONS (1)
  - Deep vein thrombosis [Recovered/Resolved]
